FAERS Safety Report 6105585-5 (Version None)
Quarter: 2009Q1

REPORT INFORMATION
  Report Type: 
  Country: None (occurrence: None)
  Receive Date: 20090306
  Receipt Date: 20090303
  Transmission Date: 20090719
  Serious: No
  Sender: FDA-Public Use
  Company Number: JP-EISAI MEDICAL RESEARCH-E2090-00667-SPO-JP

PATIENT
  Sex: Female

DRUGS (7)
  1. EXCEGRAN [Suspect]
     Indication: EPILEPSY
     Route: 048
     Dates: start: 20060613, end: 20060627
  2. ALEVIATIN [Concomitant]
  3. PHENOBARBITAL TAB [Concomitant]
  4. DEPAKENE [Concomitant]
     Route: 048
  5. GABAPEN [Concomitant]
     Route: 048
  6. DIAZEPAM [Concomitant]
  7. DIAZEPAM [Concomitant]

REACTIONS (1)
  - THROMBOCYTOPENIA [None]
